FAERS Safety Report 18801796 (Version 1)
Quarter: 2021Q1

REPORT INFORMATION
  Report Type: Spontaneous
  Country: US (occurrence: US)
  Receive Date: 20210128
  Receipt Date: 20210128
  Transmission Date: 20210419
  Serious: Yes (Other)
  Sender: FDA-Public Use
  Company Number: US-ASTRAZENECA-2021A012668

PATIENT
  Sex: Male

DRUGS (2)
  1. CALQUENCE [Suspect]
     Active Substance: ACALABRUTINIB
     Indication: CHRONIC LYMPHOCYTIC LEUKAEMIA
     Route: 048
     Dates: start: 20191101, end: 20200601
  2. IBRUTINIB [Concomitant]
     Active Substance: IBRUTINIB

REACTIONS (1)
  - Cerebral fungal infection [Recovered/Resolved]

NARRATIVE: CASE EVENT DATE: 20200601
